FAERS Safety Report 21793560 (Version 2)
Quarter: 2023Q1

REPORT INFORMATION
  Report Type: Other
  Country: AU (occurrence: AU)
  Receive Date: 20221229
  Receipt Date: 20230109
  Transmission Date: 20230417
  Serious: Yes (Hospitalization)
  Sender: FDA-Public Use
  Company Number: AU-ALVOGEN-2022088890

PATIENT
  Age: 26 Year
  Sex: Male

DRUGS (1)
  1. PRIMAQUINE [Suspect]
     Active Substance: PRIMAQUINE
     Indication: Plasmodium vivax infection
     Dosage: TOTAL DOSE OF 2.04 MG/KG

REACTIONS (3)
  - Haemolysis [Recovered/Resolved]
  - Nephropathy toxic [Recovered/Resolved]
  - Renal tubular injury [Recovered/Resolved]
